FAERS Safety Report 8589307-4 (Version None)
Quarter: 2012Q3

REPORT INFORMATION
  Report Type: 
  Country: None (occurrence: None)
  Receive Date: 20120813
  Receipt Date: 20120730
  Transmission Date: 20120928
  Serious: Yes (Death, Hospitalization)
  Sender: FDA-Public Use
  Company Number: PH-BAXTER-2012BAX013498

PATIENT
  Sex: Female

DRUGS (1)
  1. DIANEAL PD-2 W/ DEXTROSE 1.5% [Suspect]
     Route: 033
     Dates: start: 20090930, end: 20120715

REACTIONS (3)
  - PNEUMONIA [None]
  - AZOTAEMIA [None]
  - RENAL FAILURE CHRONIC [None]
